FAERS Safety Report 5703716-X (Version None)
Quarter: 2008Q2

REPORT INFORMATION
  Report Type: 
  Country: None (occurrence: None)
  Receive Date: 20080413
  Receipt Date: 20080404
  Transmission Date: 20081010
  Serious: Yes (Hospitalization, Other)
  Sender: FDA-Public Use
  Company Number: PHBS2008NL03900

PATIENT
  Age: 30 Year
  Sex: Female

DRUGS (3)
  1. CYCLOSPORINE [Suspect]
     Indication: LIVER TRANSPLANT
     Dates: start: 20030401
  2. PREDNISOLONE [Suspect]
     Indication: LIVER TRANSPLANT
     Dates: start: 20030401
  3. AZATHIOPRINE [Suspect]
     Indication: LIVER TRANSPLANT
     Dates: start: 20030401

REACTIONS (14)
  - ALANINE AMINOTRANSFERASE INCREASED [None]
  - ASCITES [None]
  - ASPARTATE AMINOTRANSFERASE INCREASED [None]
  - BLOOD BILIRUBIN INCREASED [None]
  - COLITIS ULCERATIVE [None]
  - HEPATIC CIRRHOSIS [None]
  - HEPATIC ENZYME INCREASED [None]
  - HEPATIC FIBROSIS [None]
  - HEPATITIS E [None]
  - HERPES ZOSTER [None]
  - JAUNDICE [None]
  - LIVER TRANSPLANT [None]
  - OESOPHAGEAL VARICES HAEMORRHAGE [None]
  - VIRAL TEST POSITIVE [None]
